FAERS Safety Report 19263593 (Version 4)
Quarter: 2021Q4

REPORT INFORMATION
  Report Type: Report from Study
  Country: US (occurrence: US)
  Receive Date: 20210517
  Receipt Date: 20211113
  Transmission Date: 20220304
  Serious: Yes (Hospitalization, Other)
  Sender: FDA-Public Use
  Company Number: NVSC2021US109988

PATIENT

DRUGS (1)
  1. ENTRESTO [Suspect]
     Active Substance: SACUBITRIL\VALSARTAN
     Indication: Product used for unknown indication
     Dosage: 1 DF, BID (24/26 MG)
     Route: 048
     Dates: start: 202104

REACTIONS (7)
  - Pneumonia [Unknown]
  - Arrhythmia [Unknown]
  - Pain in extremity [Unknown]
  - Weight decreased [Unknown]
  - Fatigue [Unknown]
  - Blood potassium decreased [Unknown]
  - Hypertension [Unknown]
